FAERS Safety Report 6926167-9 (Version None)
Quarter: 2010Q3

REPORT INFORMATION
  Report Type: 
  Country: None (occurrence: None)
  Receive Date: 20100816
  Receipt Date: 20100806
  Transmission Date: 20110219
  Serious: Yes (Disabling, Other)
  Sender: FDA-Public Use
  Company Number: US-PFIZER INC-2010102096

PATIENT
  Sex: Female
  Weight: 77.098 kg

DRUGS (6)
  1. LIPITOR [Suspect]
     Indication: BLOOD CHOLESTEROL INCREASED
     Dosage: 20 MG, 1X/DAY
     Route: 048
     Dates: start: 20020101, end: 20090101
  2. DIOVAN HCT [Concomitant]
     Dosage: 325 MG, 1X/DAY
     Route: 048
  3. POTASSIUM [Concomitant]
     Route: 048
  4. ZETIA [Concomitant]
     Indication: BLOOD CHOLESTEROL INCREASED
     Dosage: 5 MG, 1X/DAY
     Route: 048
  5. LEVOTHYROXINE [Concomitant]
     Indication: THYROID DISORDER
     Dosage: 200 MG, UNK
     Route: 048
  6. CYTOMEL [Concomitant]
     Indication: THYROID DISORDER
     Dosage: 25 MG, UNK
     Route: 048

REACTIONS (5)
  - BACK PAIN [None]
  - HYPOAESTHESIA [None]
  - HYPOKINESIA [None]
  - MUSCLE SPASMS [None]
  - MYALGIA [None]
